FAERS Safety Report 5891610-3 (Version None)
Quarter: 2008Q3

REPORT INFORMATION
  Report Type: 
  Country: None (occurrence: None)
  Receive Date: 20080922
  Receipt Date: 20080911
  Transmission Date: 20090109
  Serious: Yes (Life-Threatening, Other)
  Sender: FDA-Public Use
  Company Number: CN-PFIZER INC-2008067140

PATIENT
  Age: 58 Year
  Sex: Male

DRUGS (1)
  1. SOLU-MEDROL [Suspect]
     Indication: SCOLIOSIS SURGERY
     Route: 042
     Dates: start: 20080811, end: 20080811

REACTIONS (6)
  - BLOOD PRESSURE DECREASED [None]
  - BRAIN OEDEMA [None]
  - CARDIAC ARREST [None]
  - COMA [None]
  - POST PROCEDURAL INFECTION [None]
  - PULMONARY OEDEMA [None]
